FAERS Safety Report 4339225-2 (Version None)
Quarter: 2004Q2

REPORT INFORMATION
  Report Type: 
  Country: None (occurrence: None)
  Receive Date: 20040412
  Receipt Date: 20040322
  Transmission Date: 20050107
  Serious: No
  Sender: FDA-Public Use
  Company Number: 2004UW02506

PATIENT
  Age: 74 Year
  Sex: Female

DRUGS (2)
  1. SEROQUEL [Suspect]
  2. REMERON [Concomitant]

REACTIONS (1)
  - AGRANULOCYTOSIS [None]
